FAERS Safety Report 9279760 (Version 1)
Quarter: 2013Q2

REPORT INFORMATION
  Report Type: Spontaneous
  Country: US (occurrence: US)
  Receive Date: 20130509
  Receipt Date: 20130509
  Transmission Date: 20140414
  Serious: No
  Sender: FDA-Public Use
  Company Number: US-009507513-1305USA002569

PATIENT
  Age: 20 Year
  Sex: Female

DRUGS (2)
  1. IMPLANON [Suspect]
     Indication: CONTRACEPTION
     Dosage: 1 ROD UP TO 3 YEARS
     Route: 059
     Dates: start: 201010
  2. IMPLANON [Suspect]
     Indication: MOOD SWINGS

REACTIONS (4)
  - Amenorrhoea [Recovered/Resolved]
  - Drug ineffective [Unknown]
  - Drug prescribing error [Unknown]
  - Metrorrhagia [Unknown]
